FAERS Safety Report 24331061 (Version 1)
Quarter: 2024Q3

REPORT INFORMATION
  Report Type: Spontaneous
  Country: US (occurrence: US)
  Receive Date: 20240918
  Receipt Date: 20240918
  Transmission Date: 20241017
  Serious: Yes (Other)
  Sender: AMGEN
  Company Number: US-AMGEN-USASP2024184647

PATIENT
  Age: 20 Year
  Sex: Female

DRUGS (2)
  1. KRYSTEXXA [Suspect]
     Active Substance: PEGLOTICASE
     Indication: Gout
     Dosage: UNK UNK, Q2WK (EVERY 2 WEEKS)
     Route: 065
     Dates: start: 20240528, end: 2024
  2. KRYSTEXXA [Suspect]
     Active Substance: PEGLOTICASE
     Dosage: UNK UNK, Q2WK (EVERY 2 WEEKS)
     Route: 065
     Dates: start: 2024, end: 20240913

REACTIONS (1)
  - Blood uric acid increased [Unknown]

NARRATIVE: CASE EVENT DATE: 20240101
